FAERS Safety Report 9365257 (Version 1)
Quarter: 2013Q2

REPORT INFORMATION
  Report Type: Spontaneous
  Country: FR (occurrence: FR)
  Receive Date: 20130625
  Receipt Date: 20130625
  Transmission Date: 20140414
  Serious: Yes (Death, Hospitalization)
  Sender: FDA-Public Use
  Company Number: FR-ROCHE-1239478

PATIENT
  Sex: Male
  Weight: 88 kg

DRUGS (7)
  1. COPEGUS [Suspect]
     Indication: HEPATITIS C
     Route: 048
     Dates: start: 20121116
  2. PEGASYS [Suspect]
     Indication: HEPATITIS C
     Route: 065
     Dates: start: 201212
  3. VICTRELIS [Suspect]
     Indication: HEPATITIS C
     Route: 048
     Dates: start: 20121220, end: 20130110
  4. ORACILLINE [Concomitant]
  5. TRUVADA [Concomitant]
  6. NORVIR [Concomitant]
  7. REYATAZ [Concomitant]

REACTIONS (6)
  - Pneumonia [Fatal]
  - Septic shock [Fatal]
  - Renal failure [Fatal]
  - Multi-organ failure [Fatal]
  - Cor pulmonale acute [Fatal]
  - Cardiac arrest [Fatal]
